FAERS Safety Report 5363781-9 (Version None)
Quarter: 2007Q2

REPORT INFORMATION
  Report Type: 
  Country: None (occurrence: None)
  Receive Date: 20070620
  Receipt Date: 20070619
  Transmission Date: 20071010
  Serious: Yes (Other)
  Sender: FDA-Public Use
  Company Number: HQWYE701520JUN07

PATIENT

DRUGS (1)
  1. IBUPROFEN [Suspect]
     Indication: CYSTIC FIBROSIS
     Dosage: UNKNOWN

REACTIONS (1)
  - NEOPLASM MALIGNANT [None]
